FAERS Safety Report 4363449-1 (Version None)
Quarter: 2004Q2

REPORT INFORMATION
  Report Type: 
  Country: None (occurrence: None)
  Receive Date: 20040524
  Receipt Date: 20040416
  Transmission Date: 20050107
  Serious: Yes (Death, Life-Threatening, Hospitalization, Disabling, Other)
  Sender: FDA-Public Use
  Company Number: US-MERCK-0404USA01681

PATIENT
  Age: 89 Year
  Sex: Male
  Weight: 76 kg

DRUGS (8)
  1. TYLENOL [Concomitant]
     Indication: PAIN
     Route: 048
  2. NORVASC [Concomitant]
     Indication: HYPERTENSION
     Route: 048
  3. HYZAAR [Concomitant]
     Indication: HYPERTENSION
     Route: 048
  4. DARVON [Concomitant]
     Indication: PAIN
     Route: 048
  5. VIOXX [Suspect]
     Indication: BACK PAIN
     Route: 048
     Dates: start: 20030901, end: 20040201
  6. VIOXX [Suspect]
     Route: 048
     Dates: start: 20030101, end: 20030901
  7. VIOXX [Suspect]
     Indication: SPINAL COLUMN STENOSIS
     Route: 048
     Dates: start: 20030901, end: 20040201
  8. VIOXX [Suspect]
     Route: 048
     Dates: start: 20030101, end: 20030901

REACTIONS (5)
  - DRUG INEFFECTIVE [None]
  - FATIGUE [None]
  - GASTROINTESTINAL HAEMORRHAGE [None]
  - RESPIRATORY FAILURE [None]
  - SPINAL COLUMN STENOSIS [None]
